FAERS Safety Report 7868957-4 (Version None)
Quarter: 2011Q4

REPORT INFORMATION
  Report Type: 
  Country: None (occurrence: None)
  Receive Date: 20111028
  Receipt Date: 20101222
  Transmission Date: 20120403
  Serious: No
  Sender: FDA-Public Use
  Company Number: US-AMGEN-USASP2010011000

PATIENT

DRUGS (6)
  1. VITAMIN D [Concomitant]
     Dosage: 400 IU, UNK
  2. MULTIVITAMIN                       /00097801/ [Concomitant]
  3. IRON [Concomitant]
     Dosage: 18 MG, UNK
  4. CALCIUM [Concomitant]
  5. SYNTHROID [Concomitant]
     Dosage: 50 UNK, UNK
  6. ENBREL [Suspect]
     Indication: PRODUCT USED FOR UNKNOWN INDICATION
     Dosage: 50 MG, UNK

REACTIONS (3)
  - PSORIATIC ARTHROPATHY [None]
  - DRUG INEFFECTIVE [None]
  - PSORIASIS [None]
